FAERS Safety Report 7853417-7 (Version None)
Quarter: 2011Q4

REPORT INFORMATION
  Report Type: 
  Country: None (occurrence: None)
  Receive Date: 20111026
  Receipt Date: 20111018
  Transmission Date: 20120403
  Serious: Yes (Life-Threatening, Hospitalization)
  Sender: FDA-Public Use
  Company Number: US-BAYER-200928692NA

PATIENT
  Age: 44 Year
  Sex: Female
  Weight: 68 kg

DRUGS (13)
  1. POTASSIUM CHLORIDE [Concomitant]
     Indication: MINERAL SUPPLEMENTATION
     Route: 065
  2. ASCORBIC ACID [Concomitant]
     Route: 065
  3. MULTI-VITAMIN [Concomitant]
     Route: 065
  4. IBUPROFEN (ADVIL) [Concomitant]
     Route: 065
  5. YAZ [Suspect]
     Indication: MENSTRUAL DISORDER
  6. MOTRIN [Concomitant]
     Route: 065
  7. PANTOPRAZOLE [Concomitant]
     Indication: GASTROOESOPHAGEAL REFLUX DISEASE
     Dosage: 20 MG, QD
     Route: 048
     Dates: start: 20050101, end: 20081024
  8. NASONEX [Concomitant]
     Indication: MULTIPLE ALLERGIES
     Dosage: UNK UNK, UNK
     Route: 045
     Dates: start: 20050101
  9. TYLENOL-500 [Concomitant]
     Route: 065
  10. YAZ [Suspect]
     Indication: DYSMENORRHOEA
  11. ALLEGRA [Concomitant]
     Indication: MULTIPLE ALLERGIES
     Dosage: UNK UNK, QD
     Route: 048
     Dates: start: 20050101
  12. TRIAMTERENE AND HYDROCHLOROTHIAZID [Concomitant]
     Dosage: UNK UNK, UNK
     Dates: start: 20050101, end: 20071001
  13. YAZ [Suspect]
     Indication: CONTRACEPTION
     Dosage: 1 DF, QD
     Route: 048
     Dates: start: 20071010, end: 20071020

REACTIONS (8)
  - DYSPNOEA [None]
  - THROMBOPHLEBITIS SUPERFICIAL [None]
  - OEDEMA PERIPHERAL [None]
  - PULMONARY EMBOLISM [None]
  - DEEP VEIN THROMBOSIS [None]
  - ANXIETY [None]
  - PAIN IN EXTREMITY [None]
  - FEELING HOT [None]
